APPROVED DRUG PRODUCT: LIQUID PRED
Active Ingredient: PREDNISONE
Strength: 5MG/5ML
Dosage Form/Route: SYRUP;ORAL
Application: A087611 | Product #002
Applicant: MURO PHARMACEUTICAL INC
Approved: Sep 7, 1982 | RLD: No | RS: No | Type: DISCN